FAERS Safety Report 6830106-9 (Version None)
Quarter: 2010Q3

REPORT INFORMATION
  Report Type: 
  Country: None (occurrence: None)
  Receive Date: 20100711
  Receipt Date: 20100519
  Transmission Date: 20110219
  Serious: No
  Sender: FDA-Public Use
  Company Number: US-ALLERGAN-1006548US

PATIENT
  Sex: Female

DRUGS (2)
  1. LATISSE [Suspect]
     Indication: GROWTH OF EYELASHES
     Dosage: 1 GTT, QHS
     Route: 061
  2. TOBRADEX                           /01042701/ [Concomitant]

REACTIONS (3)
  - BLEPHARITIS [None]
  - ERYTHEMA OF EYELID [None]
  - EYELID OEDEMA [None]
